FAERS Safety Report 15597671 (Version 2)
Quarter: 2019Q1

REPORT INFORMATION
  Report Type: Spontaneous
  Country: US (occurrence: US)
  Receive Date: 20181108
  Receipt Date: 20190111
  Transmission Date: 20190417
  Serious: Yes (Other)
  Sender: FDA-Public Use
  Company Number: US-BAYER-2018-204314

PATIENT
  Age: 21 Year
  Sex: Female

DRUGS (1)
  1. KYLEENA [Suspect]
     Active Substance: LEVONORGESTREL
     Indication: CONTRACEPTION
     Dosage: 17.5 MCG/24HR, CONT
     Route: 015
     Dates: start: 20181001, end: 20181015

REACTIONS (4)
  - Procedural pain [None]
  - Pelvic pain [None]
  - Device expulsion [None]
  - Post procedural haemorrhage [None]

NARRATIVE: CASE EVENT DATE: 20181001
